FAERS Safety Report 6428921-9 (Version None)
Quarter: 2009Q4

REPORT INFORMATION
  Report Type: 
  Country: None (occurrence: None)
  Receive Date: 20091102
  Receipt Date: 20091016
  Transmission Date: 20100525
  Serious: Yes (Other)
  Sender: FDA-Public Use
  Company Number: A-US2009-25851

PATIENT
  Age: 70 Year
  Sex: Female

DRUGS (11)
  1. TRACLEER [Suspect]
     Indication: PULMONARY ARTERIAL HYPERTENSION
     Dosage: 62.5 MG, BID, ORAL
     Route: 048
     Dates: start: 20090608, end: 20090820
  2. HYZAAR (HYDROCHLOROTHIAZIDE, LOSARTAN) [Concomitant]
  3. AZITHROMYCIN [Concomitant]
  4. LEVOXYL [Concomitant]
  5. PHENERGAN WITH CODEINE (SULFOGAIACOL, SODIUM CITRATE, PROMETHAZINE HYD [Concomitant]
  6. PRILOSEC [Concomitant]
  7. LANOXIN [Concomitant]
  8. HYDROCHLOROTHIAZIDE [Concomitant]
  9. ANTIVERT [Concomitant]
  10. ALBUTEROL (SALBUTAMOL SULFATE) [Concomitant]
  11. OXYGEN (OXYGEN) [Concomitant]

REACTIONS (10)
  - ASPARTATE AMINOTRANSFERASE INCREASED [None]
  - BLOOD ALKALINE PHOSPHATASE INCREASED [None]
  - CHILLS [None]
  - DRUG TOXICITY [None]
  - HYPERHIDROSIS [None]
  - LIVER FUNCTION TEST ABNORMAL [None]
  - MALAISE [None]
  - MYOCARDIAL ISCHAEMIA [None]
  - OEDEMA PERIPHERAL [None]
  - PRODUCTIVE COUGH [None]
